FAERS Safety Report 8090498-2 (Version None)
Quarter: 2012Q1

REPORT INFORMATION
  Report Type: 
  Country: None (occurrence: None)
  Receive Date: 20120129
  Receipt Date: 20111103
  Transmission Date: 20120608
  Serious: No
  Sender: FDA-Public Use
  Company Number: US-ABBOTT-11P-163-0871090-00

PATIENT
  Age: 37 Year
  Sex: Male

DRUGS (2)
  1. UNKNOWN MEDICATIONS [Concomitant]
     Indication: PRODUCT USED FOR UNKNOWN INDICATION
  2. HUMIRA [Suspect]
     Indication: CROHN'S DISEASE
     Dosage: INTERRUPTED
     Dates: start: 20100301, end: 20111007

REACTIONS (3)
  - DYSGEUSIA [None]
  - SINUSITIS [None]
  - BURNING SENSATION [None]
